FAERS Safety Report 18911644 (Version 2)
Quarter: 2021Q3

REPORT INFORMATION
  Report Type: Spontaneous
  Country: CA (occurrence: CA)
  Receive Date: 20210218
  Receipt Date: 20210701
  Transmission Date: 20211014
  Serious: Yes (Death, Hospitalization)
  Sender: FDA-Public Use
  Company Number: CA-PFIZER INC-2021148669

PATIENT
  Age: 86 Year
  Sex: Male
  Weight: 41 kg

DRUGS (1)
  1. VYNDAQEL [Suspect]
     Active Substance: TAFAMIDIS MEGLUMINE
     Indication: CARDIAC AMYLOIDOSIS
     Dosage: 80 MG, 1X/DAY
     Route: 048
     Dates: start: 20201223

REACTIONS (5)
  - Dyspnoea [Recovering/Resolving]
  - Death [Fatal]
  - Disease progression [Not Recovered/Not Resolved]
  - Malaise [Recovering/Resolving]
  - Cardiac amyloidosis [Not Recovered/Not Resolved]

NARRATIVE: CASE EVENT DATE: 202102
